FAERS Safety Report 9579997 (Version 1)
Quarter: 2013Q3

REPORT INFORMATION
  Report Type: Spontaneous
  Country: US (occurrence: None)
  Receive Date: 20130916
  Receipt Date: 20130916
  Transmission Date: 20140515
  Serious: Yes (Hospitalization)
  Sender: FDA-Public Use
  Company Number: JPI-P-025564

PATIENT
  Age: 65 Year
  Sex: Male

DRUGS (14)
  1. XYREM [Suspect]
     Indication: NARCOLEPSY
     Route: 048
     Dates: start: 20080919
  2. XYREM [Suspect]
     Indication: SOMNOLENCE
     Route: 048
     Dates: start: 20080919
  3. METHYLPHENIDATE HYDROCHLORIDE [Concomitant]
  4. LISINOPRIL [Concomitant]
  5. TIZANIDINE [Concomitant]
  6. FLUTICASONE PROPIONATE [Concomitant]
  7. CLOPIDOGREL BISULFATE [Concomitant]
  8. HYDROCODONE BITARTRATE AND ACETAMINOPHEN [Concomitant]
  9. SIMVASTATIN [Concomitant]
  10. SERTRALINE HYDROCHLORIDE [Concomitant]
  11. METOPROLOL [Concomitant]
  12. ASPIRIN [Concomitant]
  13. LAMOTRIGINE [Concomitant]
  14. AMLODIPINE [Concomitant]

REACTIONS (3)
  - Bronchitis [None]
  - Sinusitis [None]
  - Rhinorrhoea [None]
